FAERS Safety Report 20940844 (Version 5)
Quarter: 2022Q3

REPORT INFORMATION
  Report Type: Report from Study
  Country: US (occurrence: US)
  Receive Date: 20220609
  Receipt Date: 20220726
  Transmission Date: 20221027
  Serious: Yes (Hospitalization)
  Sender: FDA-Public Use
  Company Number: US-NOVARTISTESTPH-NVSC2022US132594

PATIENT
  Age: 57 Year
  Sex: Female

DRUGS (1)
  1. ENTRESTO [Suspect]
     Active Substance: SACUBITRIL\VALSARTAN
     Indication: Cardiac failure
     Dosage: UNK UNK, BID
     Route: 048
     Dates: start: 20220401

REACTIONS (5)
  - Infection [Unknown]
  - Gallbladder disorder [Recovering/Resolving]
  - Malaise [Unknown]
  - Wrong technique in product usage process [Unknown]
  - Hypotension [Unknown]

NARRATIVE: CASE EVENT DATE: 20220712
